FAERS Safety Report 12195285 (Version 2)
Quarter: 2016Q2

REPORT INFORMATION
  Report Type: Spontaneous
  Country: US (occurrence: US)
  Receive Date: 20160321
  Receipt Date: 20160401
  Transmission Date: 20160815
  Serious: Yes (Other)
  Sender: FDA-Public Use
  Company Number: US-JNJFOC-20160312665

PATIENT
  Age: 56 Year
  Sex: Male
  Weight: 95.26 kg

DRUGS (1)
  1. BENADRYL ALLERGY [Suspect]
     Active Substance: DIPHENHYDRAMINE HYDROCHLORIDE
     Indication: MULTIPLE ALLERGIES
     Dosage: 2 ULTRA TABS, EVERY 4 HOURS (TOOK A TOTAL OF 4 PILLS)
     Route: 048
     Dates: start: 20160310, end: 20160310

REACTIONS (2)
  - Muscle spasms [Recovered/Resolved]
  - Seizure [Recovered/Resolved]

NARRATIVE: CASE EVENT DATE: 20160310
